FAERS Safety Report 4946614-1 (Version None)
Quarter: 2006Q1

REPORT INFORMATION
  Report Type: 
  Country: None (occurrence: None)
  Receive Date: 20060317
  Receipt Date: 20060309
  Transmission Date: 20060701
  Serious: Yes (Other)
  Sender: FDA-Public Use
  Company Number: 438412

PATIENT
  Sex: Male

DRUGS (2)
  1. DILATREND [Suspect]
     Indication: DRUG USE FOR UNKNOWN INDICATION
     Dosage: 3.3MG PER DAY
     Route: 048
  2. EFFEXOR [Suspect]
     Indication: DRUG USE FOR UNKNOWN INDICATION
     Dosage: 37MG PER DAY
     Route: 048

REACTIONS (5)
  - FEELING HOT AND COLD [None]
  - PALPITATIONS [None]
  - PULMONARY OEDEMA [None]
  - TACHYCARDIA [None]
  - THROAT TIGHTNESS [None]
